FAERS Safety Report 6893284-1 (Version None)
Quarter: 2010Q3

REPORT INFORMATION
  Report Type: 
  Country: None (occurrence: None)
  Receive Date: 20100731
  Receipt Date: 20090810
  Transmission Date: 20110219
  Serious: No
  Sender: FDA-Public Use
  Company Number: US-PFIZER INC-2009204357

PATIENT
  Sex: Male
  Weight: 102.4 kg

DRUGS (5)
  1. AMLODIPINE BESYLATE [Suspect]
     Indication: HYPERTENSION
     Dosage: 5 MG, 1X/DAY
     Route: 048
     Dates: start: 20090116, end: 20090417
  2. TORSEMIDE [Concomitant]
     Dosage: UNK
  3. KLOR-CON [Concomitant]
     Dosage: UNK
  4. COSOPT [Concomitant]
     Dosage: UNK
  5. FLUOCINONIDE [Concomitant]
     Dosage: UNK

REACTIONS (2)
  - DRUG INEFFECTIVE [None]
  - OEDEMA PERIPHERAL [None]
